FAERS Safety Report 16470557 (Version 10)
Quarter: 2024Q4

REPORT INFORMATION
  Report Type: Spontaneous
  Country: CA (occurrence: CA)
  Receive Date: 20190624
  Receipt Date: 20241219
  Transmission Date: 20250115
  Serious: Yes (Hospitalization, Other)
  Sender: OTSUKA
  Company Number: CA-OTSUKA-2019_023784

PATIENT
  Age: 35 Year
  Sex: Male

DRUGS (34)
  1. ABILIFY MAINTENA [Interacting]
     Active Substance: ARIPIPRAZOLE
     Indication: Psychotic disorder
     Dosage: 400 MG (1 EVERY), UNK
     Route: 030
  2. ABILIFY MAINTENA [Interacting]
     Active Substance: ARIPIPRAZOLE
     Indication: Bipolar I disorder
  3. ABILIFY [Interacting]
     Active Substance: ARIPIPRAZOLE
     Indication: Psychotic disorder
     Dosage: 10 MG, QD
     Route: 048
  4. ABILIFY [Interacting]
     Active Substance: ARIPIPRAZOLE
     Indication: Bipolar I disorder
     Dosage: 10 MG, QD
     Route: 065
  5. LITHIUM CARBONATE [Interacting]
     Active Substance: LITHIUM CARBONATE
     Indication: Bipolar I disorder
     Dosage: UPTO 900 MG EVERY NIGHT AT BEDTIME, QD
     Route: 048
  6. LITHIUM CARBONATE [Interacting]
     Active Substance: LITHIUM CARBONATE
     Indication: Affective disorder
     Dosage: 900 MG, QD
     Route: 048
  7. QUETIAPINE [Interacting]
     Active Substance: QUETIAPINE
     Indication: Poor quality sleep
     Dosage: UNK
     Route: 048
  8. QUETIAPINE [Interacting]
     Active Substance: QUETIAPINE
     Indication: Bipolar I disorder
  9. OXAZEPAM [Interacting]
     Active Substance: OXAZEPAM
     Indication: Poor quality sleep
     Dosage: UNK
     Route: 065
  10. OXAZEPAM [Interacting]
     Active Substance: OXAZEPAM
     Indication: Bipolar I disorder
  11. TEMAZEPAM [Suspect]
     Active Substance: TEMAZEPAM
     Indication: Poor quality sleep
     Dosage: UNK
     Route: 065
  12. TEMAZEPAM [Suspect]
     Active Substance: TEMAZEPAM
     Indication: Bipolar I disorder
  13. ZOPICLONE [Interacting]
     Active Substance: ZOPICLONE
     Indication: Poor quality sleep
     Dosage: UNK
     Route: 064
  14. ZOPICLONE [Interacting]
     Active Substance: ZOPICLONE
     Indication: Bipolar I disorder
  15. LEVOMEPROMAZINE [Suspect]
     Active Substance: LEVOMEPROMAZINE
     Indication: Poor quality sleep
     Dosage: UNK
     Route: 065
  16. LEVOMEPROMAZINE [Suspect]
     Active Substance: LEVOMEPROMAZINE
     Indication: Bipolar I disorder
  17. LEVOMEPROMAZINE [Interacting]
     Active Substance: LEVOMEPROMAZINE
     Indication: Poor quality sleep
     Dosage: UNK
     Route: 065
  18. CLONAZEPAM [Interacting]
     Active Substance: CLONAZEPAM
     Indication: Poor quality sleep
     Dosage: UNK
     Route: 065
  19. CLONAZEPAM [Interacting]
     Active Substance: CLONAZEPAM
     Indication: Dystonia
     Dosage: UNK, QD
     Route: 065
  20. CLONAZEPAM [Interacting]
     Active Substance: CLONAZEPAM
     Indication: Bipolar I disorder
  21. CLONAZEPAM [Interacting]
     Active Substance: CLONAZEPAM
     Indication: Psychotic disorder
  22. BENZTROPINE [Interacting]
     Active Substance: BENZTROPINE
     Indication: Dystonic tremor
     Dosage: UNK (REGULAR), QD
     Route: 065
  23. BENZTROPINE [Interacting]
     Active Substance: BENZTROPINE
     Indication: Dystonia
  24. BENZTROPINE [Interacting]
     Active Substance: BENZTROPINE
     Indication: Bipolar I disorder
  25. LIBRIUM [Interacting]
     Active Substance: CHLORDIAZEPOXIDE HYDROCHLORIDE
     Indication: Poor quality sleep
     Dosage: UNK
     Route: 065
  26. LEVOMEPROMAZINE MALEATE [Interacting]
     Active Substance: LEVOMEPROMAZINE MALEATE
     Indication: Poor quality sleep
     Dosage: UNK
     Route: 065
  27. QUETIAPINE FUMARATE [Interacting]
     Active Substance: QUETIAPINE FUMARATE
     Indication: Poor quality sleep
     Dosage: UNK
     Route: 048
  28. QUETIAPINE FUMARATE [Interacting]
     Active Substance: QUETIAPINE FUMARATE
     Indication: Bipolar I disorder
  29. TEMAZEPAM [Interacting]
     Active Substance: TEMAZEPAM
     Indication: Poor quality sleep
     Dosage: UNK
     Route: 065
  30. SERTRALINE [Concomitant]
     Active Substance: SERTRALINE HYDROCHLORIDE
     Indication: Depressed mood
     Dosage: UNK
     Route: 065
  31. SERTRALINE [Concomitant]
     Active Substance: SERTRALINE HYDROCHLORIDE
     Indication: Bipolar I disorder
  32. VORTIOXETINE [Concomitant]
     Active Substance: VORTIOXETINE
     Indication: Antidepressant therapy
     Dosage: 10 MG, QD (EVERY NIGHT AT  BEDTIME)
     Route: 048
  33. LORAZEPAM [Concomitant]
     Active Substance: LORAZEPAM
     Indication: Bipolar I disorder
     Dosage: UNK
     Route: 065
  34. TRINTELLIX [Concomitant]
     Active Substance: VORTIOXETINE HYDROBROMIDE
     Indication: Product used for unknown indication
     Dosage: UNK
     Route: 065

REACTIONS (10)
  - Dystonic tremor [Recovering/Resolving]
  - Muscle contracture [Recovering/Resolving]
  - Musculoskeletal stiffness [Recovering/Resolving]
  - Restlessness [Unknown]
  - Tremor [Recovering/Resolving]
  - Dystonia [Unknown]
  - Drug interaction [Unknown]
  - Drug ineffective [Unknown]
  - Off label use [Unknown]
  - Therapeutic product effect incomplete [Unknown]
